FAERS Safety Report 19890228 (Version 1)
Quarter: 2021Q3

REPORT INFORMATION
  Report Type: Spontaneous
  Country: US (occurrence: US)
  Receive Date: 20210928
  Receipt Date: 20210928
  Transmission Date: 20211014
  Serious: Yes (Hospitalization)
  Sender: FDA-Public Use
  Company Number: None

PATIENT
  Age: 72 Year
  Sex: Female
  Weight: 78.6 kg

DRUGS (1)
  1. REGEN?COV [Suspect]
     Active Substance: CASIRIVIMAB\IMDEVIMAB
     Indication: COVID-19
     Dosage: ?          OTHER FREQUENCY:ONCE;?
     Route: 041
     Dates: start: 20210925, end: 20210925

REACTIONS (8)
  - Dyspnoea [None]
  - Hypersensitivity [None]
  - Pallor [None]
  - Hyperhidrosis [None]
  - Infusion related reaction [None]
  - Hypoxia [None]
  - Oxygen saturation decreased [None]
  - Anaphylactic reaction [None]

NARRATIVE: CASE EVENT DATE: 20210925
